FAERS Safety Report 9349671 (Version 3)
Quarter: 2014Q1

REPORT INFORMATION
  Report Type: Spontaneous
  Country: US (occurrence: US)
  Receive Date: 20130614
  Receipt Date: 20140317
  Transmission Date: 20141002
  Serious: Yes (Death, Hospitalization)
  Sender: FDA-Public Use
  Company Number: US-B.I. PHARMACEUTICALS,INC./RIDGEFIELD-2013-BI-16584BP

PATIENT
  Sex: Female
  Weight: 56.7 kg

DRUGS (10)
  1. PRADAXA [Suspect]
     Indication: CEREBROVASCULAR ACCIDENT PROPHYLAXIS
     Dosage: 300 MG
     Route: 048
     Dates: start: 201012, end: 20120210
  2. PRADAXA [Suspect]
     Indication: THROMBOSIS PROPHYLAXIS
  3. NITROSTAT [Concomitant]
     Route: 065
  4. FUROSEMIDE [Concomitant]
     Indication: DIURETIC THERAPY
     Dosage: 80 MG
     Route: 048
  5. DILTIAZEM [Concomitant]
     Dosage: 360 MG
     Route: 065
     Dates: start: 2003
  6. ZOCOR [Concomitant]
     Dosage: 40 MG
     Route: 048
     Dates: start: 2003
  7. LOMOTIL [Concomitant]
     Route: 065
  8. BENADRYL [Concomitant]
     Route: 065
  9. IMODIUM [Concomitant]
     Dosage: 8 MG
     Route: 048
  10. PROTONIX [Concomitant]
     Dosage: 40 MG
     Route: 048

REACTIONS (3)
  - Gastrointestinal haemorrhage [Fatal]
  - Cerebrovascular accident [Fatal]
  - Haemorrhagic anaemia [Unknown]
